FAERS Safety Report 10065427 (Version 1)
Quarter: 2014Q2

REPORT INFORMATION
  Report Type: Spontaneous
  Country: JP (occurrence: JP)
  Receive Date: 20140408
  Receipt Date: 20140408
  Transmission Date: 20141212
  Serious: Yes (Hospitalization)
  Sender: FDA-Public Use
  Company Number: JP-B.I. PHARMACEUTICALS,INC./RIDGEFIELD-2014-BI-15598YA

PATIENT
  Age: 76 Year
  Sex: Female

DRUGS (8)
  1. HARNAL D [Suspect]
     Indication: NEUROGENIC BLADDER
     Dosage: 0.1 MG
     Route: 048
     Dates: start: 201401
  2. BETANIS [Suspect]
     Indication: HYPERTONIC BLADDER
     Dosage: 50 MG
     Route: 048
     Dates: start: 201401
  3. MYSLEE [Suspect]
     Indication: SLEEP DISORDER
     Dosage: 10 MG
     Route: 048
     Dates: start: 2013
  4. EBRANTIL [Suspect]
     Indication: PRODUCT USED FOR UNKNOWN INDICATION
     Dosage: 30 MG
     Route: 048
     Dates: start: 201401, end: 20140328
  5. NEXIUM (ESOMEPRAZOLE MAGNESIUM) [Suspect]
     Indication: PRODUCT USED FOR UNKNOWN INDICATION
     Dosage: 20 MG
     Route: 048
     Dates: start: 2013
  6. OLMETEC [Suspect]
     Indication: PRODUCT USED FOR UNKNOWN INDICATION
     Dosage: 20 MG
     Route: 048
     Dates: start: 2013
  7. RAMIAN [Suspect]
     Indication: PRODUCT USED FOR UNKNOWN INDICATION
     Dosage: 5 MG
     Route: 048
     Dates: start: 2013
  8. PLETAAL [Suspect]
     Indication: PRODUCT USED FOR UNKNOWN INDICATION
     Dosage: 50 MG
     Route: 048
     Dates: start: 2013

REACTIONS (3)
  - Transient ischaemic attack [Recovered/Resolved]
  - Loss of consciousness [Recovered/Resolved]
  - Off label use [Unknown]
